FAERS Safety Report 10307772 (Version 2)
Quarter: 2014Q3

REPORT INFORMATION
  Report Type: Spontaneous
  Country: US (occurrence: US)
  Receive Date: 20140716
  Receipt Date: 20140724
  Transmission Date: 20150326
  Serious: Yes (Other)
  Sender: FDA-Public Use
  Company Number: CHPA2014US009468

PATIENT
  Age: 71 Year
  Sex: Female

DRUGS (2)
  1. VOLTAREN [Suspect]
     Active Substance: DICLOFENAC SODIUM
     Indication: TENDONITIS
     Dosage: 2 G, BID
     Route: 061
     Dates: start: 201303
  2. VOLTAREN [Suspect]
     Active Substance: DICLOFENAC SODIUM
     Indication: OFF LABEL USE
     Dosage: 2 G, TID
     Route: 061
     Dates: start: 201402

REACTIONS (6)
  - Arthritis [Unknown]
  - Weight increased [Not Recovered/Not Resolved]
  - Drug administered at inappropriate site [Unknown]
  - Trigger finger [Unknown]
  - Therapeutic response changed [Unknown]
  - Food craving [Not Recovered/Not Resolved]

NARRATIVE: CASE EVENT DATE: 201303
